FAERS Safety Report 9976879 (Version 1)
Quarter: 2014Q1

REPORT INFORMATION
  Report Type: Report from Study
  Country: US (occurrence: US)
  Receive Date: 20140306
  Receipt Date: 20140306
  Transmission Date: 20141002
  Serious: No
  Sender: FDA-Public Use
  Company Number: US-ABBVIE-13P-163-1167714-00

PATIENT
  Age: 34 Year
  Sex: Female
  Weight: 82.63 kg

DRUGS (20)
  1. HUMIRA [Suspect]
     Indication: PYODERMA GANGRENOSUM
     Dates: start: 20131024, end: 20131024
  2. HUMIRA [Suspect]
  3. PRILOSEC [Concomitant]
     Indication: GASTROOESOPHAGEAL REFLUX DISEASE
  4. HYDROCODONE [Concomitant]
     Indication: BACK PAIN
  5. HYDROCODONE [Concomitant]
     Indication: PAIN
  6. ESTRADIOL [Concomitant]
     Indication: HORMONE REPLACEMENT THERAPY
  7. SYMBICORT [Concomitant]
     Indication: ASTHMA
  8. PROAIR [Concomitant]
     Indication: ASTHMA
     Route: 055
  9. PREDNISONE [Concomitant]
     Indication: PYODERMA GANGRENOSUM
  10. VALTREX [Concomitant]
     Indication: GENITAL HERPES
  11. PROZAC [Concomitant]
     Indication: PRODUCT USED FOR UNKNOWN INDICATION
  12. VITAMIN D3 [Concomitant]
     Indication: VITAMIN SUPPLEMENTATION
  13. LUNESTA [Concomitant]
     Indication: INSOMNIA
  14. LEVOTHYROXINE [Concomitant]
     Indication: HYPOTHYROIDISM
  15. LEVOTHYROXINE [Concomitant]
  16. PROMETHAZINE [Concomitant]
     Indication: NAUSEA
  17. EPIPEN [Concomitant]
     Indication: HYPERSENSITIVITY
  18. EPIPEN [Concomitant]
     Indication: PROPHYLAXIS
  19. MELATONIN [Concomitant]
     Indication: INSOMNIA
  20. CYCLOSPORINE [Concomitant]
     Indication: PRODUCT USED FOR UNKNOWN INDICATION

REACTIONS (6)
  - Off label use [Not Recovered/Not Resolved]
  - Injection site bruising [Not Recovered/Not Resolved]
  - Headache [Recovered/Resolved]
  - Injection site erythema [Recovered/Resolved]
  - Injection site induration [Recovered/Resolved]
  - Injection site pain [Recovered/Resolved]
